FAERS Safety Report 6098110-9 (Version None)
Quarter: 2009Q1

REPORT INFORMATION
  Report Type: 
  Country: None (occurrence: None)
  Receive Date: 20090227
  Receipt Date: 20090223
  Transmission Date: 20090719
  Serious: No
  Sender: FDA-Public Use
  Company Number: US-B.I. PHARMACEUTICALS,INC./RIDGEFIELD-2009-BP-02149BP

PATIENT
  Sex: Male

DRUGS (14)
  1. MIRAPEX [Suspect]
     Indication: RESTLESS LEGS SYNDROME
     Dosage: .25MG
     Route: 048
     Dates: start: 20081201
  2. JANUVIA [Concomitant]
     Indication: TYPE 2 DIABETES MELLITUS
  3. AMARYL [Concomitant]
     Indication: TYPE 2 DIABETES MELLITUS
  4. FLOMAX [Concomitant]
     Indication: PROSTATE CANCER
  5. ZOLOFT [Concomitant]
     Indication: DEPRESSION
  6. IMDUR [Concomitant]
     Indication: CARDIAC DISORDER
  7. COREG [Concomitant]
     Indication: CARDIAC DISORDER
  8. LANOXIN [Concomitant]
     Indication: CARDIAC DISORDER
  9. AVAPRO [Concomitant]
     Indication: CARDIAC DISORDER
  10. COUMADIN [Concomitant]
     Indication: CARDIAC DISORDER
  11. IRON INFUSION [Concomitant]
     Indication: IRON DEFICIENCY
  12. CPAP MACHINE [Concomitant]
     Indication: SLEEP APNOEA SYNDROME
  13. TORESAMIDE [Concomitant]
     Indication: CARDIAC FAILURE CONGESTIVE
  14. NORVASC [Concomitant]
     Indication: CARDIAC DISORDER

REACTIONS (1)
  - BLOOD GLUCOSE INCREASED [None]
